FAERS Safety Report 8402103-3 (Version None)
Quarter: 2012Q2

REPORT INFORMATION
  Report Type: 
  Country: None (occurrence: None)
  Receive Date: 20120601
  Receipt Date: 20120531
  Transmission Date: 20120825
  Serious: Yes (Death)
  Sender: FDA-Public Use
  Company Number: PHFR2012GB002856

PATIENT
  Sex: Male

DRUGS (9)
  1. DEPAKOTE [Concomitant]
     Indication: SCHIZOPHRENIA
     Dosage: 2250 MG, UNK
     Route: 048
     Dates: start: 20070101
  2. RAMIPRIL [Concomitant]
  3. TRIHEXYPHENIDYL HCL [Concomitant]
     Indication: EXTRAPYRAMIDAL DISORDER
     Dosage: 3 MG, UNK
     Dates: start: 20070101
  4. AMLODIPINE [Concomitant]
  5. HYOSCINE HYDROBROMIDE [Concomitant]
     Indication: SALIVARY HYPERSECRETION
     Dosage: 300 UG, UNK
     Route: 048
  6. CLOZARIL [Suspect]
     Indication: SCHIZOPHRENIA
     Dosage: 500 MG, UNK
     Route: 048
     Dates: start: 20070520
  7. INSULIN [Concomitant]
  8. SULPIRIDE [Concomitant]
     Indication: SCHIZOPHRENIA
     Dosage: 1000 MG, UNK
     Route: 048
     Dates: start: 20070806
  9. METFORMIN HCL [Concomitant]

REACTIONS (5)
  - LUNG DISORDER [None]
  - SUDDEN DEATH [None]
  - TOXICITY TO VARIOUS AGENTS [None]
  - MYOCARDIAL ISCHAEMIA [None]
  - HAEMOGLOBIN DECREASED [None]
